FAERS Safety Report 7249916-1 (Version None)
Quarter: 2011Q1

REPORT INFORMATION
  Report Type: 
  Country: None (occurrence: None)
  Receive Date: 20110128
  Receipt Date: 20100820
  Transmission Date: 20110831
  Serious: No
  Sender: FDA-Public Use
  Company Number: A0880532A

PATIENT
  Sex: Female

DRUGS (2)
  1. TOPAMAX [Concomitant]
  2. WELLBUTRIN [Suspect]
     Route: 065

REACTIONS (2)
  - FEELING ABNORMAL [None]
  - HEADACHE [None]
